FAERS Safety Report 6354614-2 (Version None)
Quarter: 2009Q3

REPORT INFORMATION
  Report Type: 
  Country: None (occurrence: None)
  Receive Date: 20090909
  Receipt Date: 20090826
  Transmission Date: 20100115
  Serious: Yes (Other)
  Sender: FDA-Public Use
  Company Number: JP-1169950

PATIENT
  Age: 69 Year
  Sex: Male

DRUGS (6)
  1. AZOPT   (BRINZOLAMIDE) 1% OPHTHALMIC SUSPENSION EYE DROPS, [Suspect]
     Indication: GLAUCOMA
     Dosage: 1 GTT BID OS OPHTHALMIC
     Route: 047
     Dates: start: 20060802, end: 20081101
  2. MIKELAN (CARTEOLOL HYDROCHLORIDE) [Concomitant]
  3. DIAMOX [Concomitant]
  4. BETAMETHASONE [Concomitant]
  5. LEVOFLOXACIN [Concomitant]
  6. FLUMETHOLON (FLUOROMETOLONE) [Concomitant]

REACTIONS (2)
  - CORNEAL DISORDER [None]
  - UVEITIS [None]
